FAERS Safety Report 21935987 (Version 3)
Quarter: 2024Q1

REPORT INFORMATION
  Report Type: Spontaneous
  Country: ES (occurrence: ES)
  Receive Date: 20230201
  Receipt Date: 20240328
  Transmission Date: 20240409
  Serious: Yes (Other)
  Sender: FDA-Public Use
  Company Number: None

PATIENT

DRUGS (2)
  1. DOXYCYCLINE [Suspect]
     Active Substance: DOXYCYCLINE
     Indication: Anal chlamydia infection
     Dosage: 1 DOSAGE FORM
     Route: 065
     Dates: start: 2022
  2. ACETAMINOPHEN [Concomitant]
     Active Substance: ACETAMINOPHEN
     Indication: Anal chlamydia infection
     Dosage: 1 DOSAGE FORM
     Route: 065
     Dates: start: 2022

REACTIONS (2)
  - Monkeypox [Recovered/Resolved]
  - Intentional product use issue [Recovered/Resolved]
